FAERS Safety Report 21601953 (Version 1)
Quarter: 2022Q4

REPORT INFORMATION
  Report Type: Spontaneous
  Country: CN (occurrence: CN)
  Receive Date: 20221116
  Receipt Date: 20221116
  Transmission Date: 20230113
  Serious: Yes (Hospitalization, Other)
  Sender: FDA-Public Use
  Company Number: CN-ORGANON-O2211CHN001211

PATIENT
  Age: 70 Year
  Sex: Male
  Weight: 70 kg

DRUGS (2)
  1. EZETIMIBE [Suspect]
     Active Substance: EZETIMIBE
     Indication: Carotid arteriosclerosis
     Dosage: 10 MG, QD
     Route: 048
     Dates: start: 20220723, end: 20221023
  2. PITAVASTATIN CALCIUM [Suspect]
     Active Substance: PITAVASTATIN CALCIUM
     Indication: Arteriosclerosis
     Dosage: 2 MG, QD
     Route: 048
     Dates: start: 20220723, end: 20221023

REACTIONS (6)
  - Blood creatine phosphokinase increased [Unknown]
  - Pain in extremity [Unknown]
  - Hepatic function abnormal [Unknown]
  - Oedema peripheral [Unknown]
  - Embolism venous [Unknown]
  - Product use in unapproved indication [Unknown]

NARRATIVE: CASE EVENT DATE: 20220101
